FAERS Safety Report 17529064 (Version 2)
Quarter: 2024Q3

REPORT INFORMATION
  Report Type: Spontaneous
  Country: US (occurrence: US)
  Receive Date: 20200311
  Receipt Date: 20240830
  Transmission Date: 20241016
  Serious: Yes (Hospitalization, Other)
  Sender: MYLAN
  Company Number: US-MYLANLABS-2020M1027638

PATIENT
  Age: 19 Year
  Sex: Male

DRUGS (2)
  1. CLOZAPINE [Suspect]
     Active Substance: CLOZAPINE
     Indication: Schizophrenia
     Dosage: THE DOSE HAD BEEN TITRATED EVERY THIRD DAY
     Route: 065
  2. OLANZAPINE [Concomitant]
     Active Substance: OLANZAPINE
     Indication: Schizophrenia
     Dosage: 15 MILLIGRAM, QOD
     Route: 065

REACTIONS (2)
  - Myocarditis [Recovered/Resolved]
  - Ventricular hypokinesia [Recovered/Resolved]
